FAERS Safety Report 7802731-X (Version None)
Quarter: 2011Q4

REPORT INFORMATION
  Report Type: 
  Country: None (occurrence: None)
  Receive Date: 20111007
  Receipt Date: 20110929
  Transmission Date: 20120403
  Serious: Yes (Hospitalization)
  Sender: FDA-Public Use
  Company Number: PHHY2011IT86059

PATIENT
  Sex: Male

DRUGS (2)
  1. ENALAPRIL MALEATE [Suspect]
  2. CARVEDILOL [Suspect]
     Route: 065

REACTIONS (2)
  - SYNCOPE [None]
  - INJURY [None]
